FAERS Safety Report 7740850-7 (Version None)
Quarter: 2011Q3

REPORT INFORMATION
  Report Type: 
  Country: None (occurrence: None)
  Receive Date: 20110909
  Receipt Date: 20110207
  Transmission Date: 20111222
  Serious: No
  Sender: FDA-Public Use
  Company Number: US-BAYER-2011-012830

PATIENT
  Sex: Female

DRUGS (1)
  1. MIRENA [Suspect]
     Indication: CONTRACEPTION
     Dosage: 20 MCG/24HR, CONT
     Route: 015
     Dates: start: 20080713

REACTIONS (9)
  - URINARY INCONTINENCE [None]
  - MIGRAINE [None]
  - MOOD ALTERED [None]
  - DEVICE DISLOCATION [None]
  - DEPRESSION [None]
  - URINARY TRACT INFECTION [None]
  - ANGER [None]
  - PROCEDURAL PAIN [None]
  - INCREASED TENDENCY TO BRUISE [None]
